FAERS Safety Report 5585243-6 (Version None)
Quarter: 2008Q1

REPORT INFORMATION
  Report Type: 
  Country: None (occurrence: None)
  Receive Date: 20080104
  Receipt Date: 20080104
  Transmission Date: 20080703
  Serious: Yes (Other)
  Sender: FDA-Public Use
  Company Number: None

PATIENT
  Age: 60 Year
  Sex: Female
  Weight: 63.5036 kg

DRUGS (1)
  1. LEVAQUIN [Suspect]
     Indication: PNEUMONIA
     Dosage: 10 DAYS/3TIMES A DAY
     Dates: start: 20041022, end: 20041031

REACTIONS (2)
  - ATRIAL FIBRILLATION [None]
  - PERFORATED ULCER [None]
